FAERS Safety Report 24867244 (Version 1)
Quarter: 2025Q1

REPORT INFORMATION
  Report Type: Spontaneous
  Country: US (occurrence: None)
  Receive Date: 20250117
  Receipt Date: 20250117
  Transmission Date: 20250408
  Serious: Yes (Death)
  Sender: FDA-CTU
  Company Number: None

PATIENT
  Age: 61 Year
  Sex: Female
  Weight: 97.5 kg

DRUGS (12)
  1. SIROLIMUS [Suspect]
     Active Substance: SIROLIMUS
     Indication: Renal transplant
     Dosage: 2 MG DAILY ORAL
     Route: 048
     Dates: start: 20240916
  2. TACROLIMUS [Suspect]
     Active Substance: TACROLIMUS
     Indication: Renal transplant
     Dosage: 6 MG BID ORAL ?
     Route: 048
     Dates: start: 20221031, end: 20241208
  3. MYCOPHENOLATE MOFETIL [Concomitant]
     Active Substance: MYCOPHENOLATE MOFETIL
  4. prednisone 5 mg cap [Concomitant]
  5. ondansetron 8 mg tab [Concomitant]
  6. SCOPOLAMINE TRANSDERMAL SYSTEM [Concomitant]
     Active Substance: SCOPOLAMINE
  7. atovaquone 250mg/5ml suspension [Concomitant]
  8. FLUCONAZOLE [Concomitant]
     Active Substance: FLUCONAZOLE
  9. ATORVASTATIN CALCIUM [Concomitant]
     Active Substance: ATORVASTATIN CALCIUM
  10. sodium bicarbonate 10 gm tab [Concomitant]
  11. rybelsus 7mg tab [Concomitant]
  12. DULOXETINE [Concomitant]
     Active Substance: DULOXETINE

REACTIONS (1)
  - Death [None]

NARRATIVE: CASE EVENT DATE: 20250117
